FAERS Safety Report 25357062 (Version 2)
Quarter: 2025Q3

REPORT INFORMATION
  Report Type: Spontaneous
  Country: US (occurrence: US)
  Receive Date: 20250526
  Receipt Date: 20250916
  Transmission Date: 20251021
  Serious: No
  Sender: ELI LILLY AND COMPANY
  Company Number: US-ELI_LILLY_AND_COMPANY-US202505014219

PATIENT
  Age: 70 Year
  Sex: Male
  Weight: 88.889 kg

DRUGS (8)
  1. KISUNLA [Suspect]
     Active Substance: DONANEMAB-AZBT
     Indication: Dementia Alzheimer^s type
     Dosage: 700 MG, MONTHLY (1/M) (1ST INFUSION)
     Route: 042
     Dates: start: 20250117
  2. KISUNLA [Suspect]
     Active Substance: DONANEMAB-AZBT
     Dosage: 700 MG, MONTHLY (1/M) (2ND INFUSION)
     Route: 042
     Dates: start: 20250214
  3. KISUNLA [Suspect]
     Active Substance: DONANEMAB-AZBT
     Dosage: 700 MG, MONTHLY (1/M) (3RD INFUSION)
     Route: 042
     Dates: start: 20250314
  4. KISUNLA [Suspect]
     Active Substance: DONANEMAB-AZBT
     Dosage: 1400 MG, MONTHLY (1/M)  (4TH INFUSION)
     Route: 042
     Dates: start: 20250411
  5. KISUNLA [Suspect]
     Active Substance: DONANEMAB-AZBT
     Dosage: 1400 MG, MONTHLY (1/M) (5TH INFUSION)
     Route: 042
     Dates: start: 20250509
  6. KISUNLA [Suspect]
     Active Substance: DONANEMAB-AZBT
     Dosage: 1400 MG, MONTHLY (1/M) (6TH INFUSION)
     Route: 042
     Dates: start: 20250609
  7. KISUNLA [Suspect]
     Active Substance: DONANEMAB-AZBT
     Dosage: 1400 MG, MONTHLY (1/M) (7TH INFUSION)
     Route: 042
     Dates: start: 20250626
  8. DECADRON [Concomitant]
     Active Substance: DEXAMETHASONE
     Indication: Premedication
     Route: 065
     Dates: start: 20250626

REACTIONS (9)
  - Cold sweat [Unknown]
  - Glassy eyes [Unknown]
  - Pallor [Unknown]
  - Blood pressure increased [Unknown]
  - Blood pressure decreased [Unknown]
  - Erythema [Unknown]
  - Infusion related reaction [Unknown]
  - Infusion related reaction [Unknown]
  - Infusion related reaction [Unknown]

NARRATIVE: CASE EVENT DATE: 20250509
